FAERS Safety Report 9024282 (Version 2)
Quarter: 2013Q4

REPORT INFORMATION
  Report Type: Report from Study
  Country: BR (occurrence: BR)
  Receive Date: 20130121
  Receipt Date: 20131205
  Transmission Date: 20140711
  Serious: Yes (Other)
  Sender: FDA-Public Use
  Company Number: PHHY2013BR005348

PATIENT
  Sex: Male

DRUGS (4)
  1. DIOVAN [Suspect]
     Indication: HYPERTENSION
     Dosage: 80 MG, DAILY (1 DF)
     Dates: end: 2010
  2. DIOVAN [Suspect]
     Dosage: 160 MG, UNK
  3. DIOVAN [Suspect]
     Dosage: 320 MG, UNK (WHEN BP WAS HIGH)
  4. PURAN T4 [Concomitant]
     Indication: THYROID DISORDER
     Dosage: 50 UG, UNK

REACTIONS (5)
  - Infarction [Recovered/Resolved]
  - Arterial occlusive disease [Recovered/Resolved]
  - Blood cholesterol increased [Recovered/Resolved]
  - Feeling abnormal [Unknown]
  - Hypertension [Recovered/Resolved]
